FAERS Safety Report 8275055-7 (Version None)
Quarter: 2012Q2

REPORT INFORMATION
  Report Type: 
  Country: None (occurrence: None)
  Receive Date: 20120411
  Receipt Date: 20120405
  Transmission Date: 20120825
  Serious: Yes (Hospitalization)
  Sender: FDA-Public Use
  Company Number: CHNY2012IT000460

PATIENT
  Sex: Female

DRUGS (6)
  1. ZYPREXA [Concomitant]
     Dosage: 2 DF, UNK
  2. MIRTAZAPINE [Concomitant]
     Dosage: 0.5 DF, UNK
  3. PURSENNID [Suspect]
     Indication: CONSTIPATION
     Dosage: 12 MG, QID
     Route: 048
     Dates: start: 20120315, end: 20120315
  4. DURAGESIC-100 [Concomitant]
     Dosage: 25 MG, UNK
  5. LASIX [Concomitant]
     Dosage: 0.25 DF, UNK
  6. ENOXAPARIN SODIUM [Concomitant]

REACTIONS (2)
  - HYPOKALAEMIA [None]
  - SYNCOPE [None]
